FAERS Safety Report 4567776-4 (Version None)
Quarter: 2005Q1

REPORT INFORMATION
  Report Type: 
  Country: None (occurrence: None)
  Receive Date: 20050125
  Receipt Date: 20050125
  Transmission Date: 20050727
  Serious: Yes (Life-Threatening, Hospitalization, Disabling, Other)
  Sender: FDA-Public Use
  Company Number: None

PATIENT
  Age: 38 Year
  Sex: Female
  Weight: 72.5755 kg

DRUGS (4)
  1. NEURONTIN [Suspect]
     Indication: DEPRESSION
     Dosage: 600MG MORNING 600MG NIGHT
     Dates: start: 20000209, end: 20020930
  2. NEURONTIN [Suspect]
     Indication: POST-TRAUMATIC STRESS DISORDER
     Dosage: 600MG MORNING 600MG NIGHT
     Dates: start: 20000209, end: 20020930
  3. PAXIL [Suspect]
     Indication: DEPRESSION
     Dosage: 30 MG MORNINGS
     Dates: start: 19990515, end: 20020930
  4. PAXIL [Suspect]
     Indication: POST-TRAUMATIC STRESS DISORDER
     Dosage: 30 MG MORNINGS
     Dates: start: 19990515, end: 20020930

REACTIONS (9)
  - DISTURBANCE IN ATTENTION [None]
  - EYE ROLLING [None]
  - MENTAL DISORDER [None]
  - OVERDOSE [None]
  - PAIN [None]
  - RENAL DISORDER [None]
  - SUICIDAL IDEATION [None]
  - SUICIDE ATTEMPT [None]
  - TINNITUS [None]
